FAERS Safety Report 7250088-8 (Version None)
Quarter: 2011Q1

REPORT INFORMATION
  Report Type: 
  Country: None (occurrence: None)
  Receive Date: 20110128
  Receipt Date: 20101221
  Transmission Date: 20110831
  Serious: Yes (Hospitalization)
  Sender: FDA-Public Use
  Company Number: US-BAYER-201010380NA

PATIENT
  Sex: Female
  Weight: 86 kg

DRUGS (14)
  1. YASMIN [Suspect]
     Indication: OVARIAN CYST
  2. YASMIN [Suspect]
     Indication: DYSMENORRHOEA
  3. YASMIN [Suspect]
     Indication: ORAL CONTRACEPTION
     Dosage: UNK
     Route: 048
     Dates: start: 20030101, end: 20030801
  4. YASMIN [Suspect]
     Indication: METRORRHAGIA
     Dosage: UNK
     Dates: start: 20031201, end: 20050801
  5. MULTIVITAMINS AND IRON [Concomitant]
  6. IRON SUPPLEMENT [Concomitant]
  7. YAZ [Suspect]
     Indication: METRORRHAGIA
  8. MOTRIN [Concomitant]
     Dates: start: 20060101, end: 20080101
  9. YAZ [Suspect]
     Indication: ORAL CONTRACEPTION
     Dosage: UNK
     Route: 048
     Dates: start: 20061201, end: 20070101
  10. YAZ [Suspect]
     Indication: OVARIAN CYST
  11. ASCORBIC ACID [Concomitant]
  12. YAZ [Suspect]
     Indication: DYSMENORRHOEA
  13. ANTIBIOTICS [Concomitant]
     Dates: start: 20070101, end: 20090101
  14. OVCON-35 [Concomitant]
     Dosage: UNK
     Dates: start: 20050801

REACTIONS (13)
  - CHOLELITHIASIS [None]
  - CONSTIPATION [None]
  - ABDOMINAL TENDERNESS [None]
  - MUSCLE SPASMS [None]
  - DIARRHOEA [None]
  - BACK PAIN [None]
  - FLATULENCE [None]
  - FATIGUE [None]
  - ABDOMINAL PAIN UPPER [None]
  - GALLBLADDER DISORDER [None]
  - ABDOMINAL DISTENSION [None]
  - KELOID SCAR [None]
  - BOWEL MOVEMENT IRREGULARITY [None]
